FAERS Safety Report 5100558-3 (Version None)
Quarter: 2006Q3

REPORT INFORMATION
  Report Type: 
  Country: None (occurrence: None)
  Receive Date: 20060909
  Receipt Date: 20060831
  Transmission Date: 20061208
  Serious: Yes (Other)
  Sender: FDA-Public Use
  Company Number: GB-ABBOTT-06P-167-0342729-00

PATIENT
  Age: 3 Year
  Sex: Male

DRUGS (2)
  1. EPILIM [Suspect]
     Indication: EPILEPSY
     Route: 048
     Dates: start: 20060606, end: 20060707
  2. PHENYTOIN [Concomitant]
     Indication: EPILEPSY
     Dates: start: 20060203

REACTIONS (6)
  - DIARRHOEA [None]
  - JAUNDICE [None]
  - LETHARGY [None]
  - LIVER FUNCTION TEST ABNORMAL [None]
  - SOMNOLENCE [None]
  - SPEECH DISORDER DEVELOPMENTAL [None]
